FAERS Safety Report 6923632-5 (Version None)
Quarter: 2010Q3

REPORT INFORMATION
  Report Type: 
  Country: None (occurrence: None)
  Receive Date: 20100813
  Receipt Date: 20100805
  Transmission Date: 20110219
  Serious: Yes (Death, Hospitalization)
  Sender: FDA-Public Use
  Company Number: A0875620A

PATIENT
  Age: 68 Year
  Sex: Male

DRUGS (1)
  1. ROSIGLITAZONE MALEATE [Suspect]
     Dosage: 2MG TWICE PER DAY
     Route: 048
     Dates: start: 20010101, end: 20040101

REACTIONS (3)
  - DEATH [None]
  - MYOCARDIAL INFARCTION [None]
  - TRANSIENT ISCHAEMIC ATTACK [None]
